FAERS Safety Report 5899952-2 (Version None)
Quarter: 2008Q3

REPORT INFORMATION
  Report Type: 
  Country: None (occurrence: None)
  Receive Date: 20080926
  Receipt Date: 20080919
  Transmission Date: 20090109
  Serious: Yes (Hospitalization)
  Sender: FDA-Public Use
  Company Number: A0749467A

PATIENT
  Age: 47 Year
  Sex: Female
  Weight: 100 kg

DRUGS (8)
  1. AVANDAMET [Suspect]
     Route: 048
     Dates: start: 20051110, end: 20070101
  2. DIOVAN HCT [Concomitant]
     Dates: start: 20060323
  3. LYRICA [Concomitant]
  4. CADUET [Concomitant]
  5. NEURONTIN [Concomitant]
  6. HYDROCHLOROTHIAZIDE [Concomitant]
     Dates: start: 20060523
  7. METOPROLOL [Concomitant]
  8. NORVASC [Concomitant]

REACTIONS (1)
  - HYPERTENSIVE CRISIS [None]
